FAERS Safety Report 7222945-X (Version None)
Quarter: 2011Q1

REPORT INFORMATION
  Report Type: 
  Country: None (occurrence: None)
  Receive Date: 20110106
  Receipt Date: 20110106
  Transmission Date: 20110831
  Serious: Yes (Hospitalization)
  Sender: FDA-Public Use
  Company Number: None

PATIENT
  Age: 20 Year
  Sex: Male
  Weight: 102.3 kg

DRUGS (4)
  1. TYLENOL-500 [Suspect]
     Indication: ORTHOPEDIC PROCEDURE
     Dosage: 1000MG Q3HR PO
     Route: 048
  2. OXYCODONE [Concomitant]
  3. ASA [Concomitant]
  4. SENNA [Concomitant]

REACTIONS (2)
  - TRANSAMINASES INCREASED [None]
  - ACCIDENTAL OVERDOSE [None]
